FAERS Safety Report 15663431 (Version 1)
Quarter: 2018Q4

REPORT INFORMATION
  Report Type: Spontaneous
  Country: US (occurrence: US)
  Receive Date: 20181128
  Receipt Date: 20181128
  Transmission Date: 20190205
  Serious: Yes (Other)
  Sender: FDA-Public Use
  Company Number: US-CIPLA LTD.-2018US23084

PATIENT

DRUGS (6)
  1. PROPRANOLOL [Concomitant]
     Active Substance: PROPRANOLOL HYDROCHLORIDE
     Indication: PRODUCT USED FOR UNKNOWN INDICATION
     Dosage: 160 MG, PER DAY
     Route: 065
  2. PRIMIDONE. [Interacting]
     Active Substance: PRIMIDONE
     Dosage: 250 MG, TID, TITRATED OVER THE NEXT 4 WEEKS
     Route: 065
  3. PRIMIDONE. [Interacting]
     Active Substance: PRIMIDONE
     Dosage: 250 MG, BID
     Route: 065
  4. WARFARIN [Suspect]
     Active Substance: WARFARIN
     Indication: PULMONARY EMBOLISM
     Dosage: 52 MG, PER WEEK, STABLE DOSE
     Route: 065
  5. WARFARIN [Interacting]
     Active Substance: WARFARIN
     Dosage: 128 MG, PER WEEK
     Route: 065
  6. PRIMIDONE. [Interacting]
     Active Substance: PRIMIDONE
     Indication: ESSENTIAL TREMOR
     Dosage: 50 MG, DAILY
     Route: 065

REACTIONS (2)
  - Drug resistance [Unknown]
  - Drug interaction [Unknown]
